FAERS Safety Report 6420505-1 (Version None)
Quarter: 2009Q4

REPORT INFORMATION
  Report Type: 
  Country: None (occurrence: None)
  Receive Date: 20091027
  Receipt Date: 20091021
  Transmission Date: 20100525
  Serious: Yes (Disabling)
  Sender: FDA-Public Use
  Company Number: 2009AL006761

PATIENT
  Age: 94 Year
  Sex: Female

DRUGS (2)
  1. CARVEDILOL [Suspect]
     Dates: start: 20090901
  2. TENORMIN [Concomitant]

REACTIONS (1)
  - VISUAL ACUITY REDUCED [None]
